FAERS Safety Report 25284574 (Version 1)
Quarter: 2025Q2

REPORT INFORMATION
  Report Type: Spontaneous
  Country: US (occurrence: US)
  Receive Date: 20250508
  Receipt Date: 20250508
  Transmission Date: 20250717
  Serious: Yes (Hospitalization, Other)
  Sender: BRISTOL-MYERS SQUIBB COMPANY
  Company Number: US-BRISTOL-MYERS SQUIBB COMPANY-2025-065589

PATIENT
  Age: 49 Year
  Sex: Male

DRUGS (2)
  1. NIVOLUMAB [Suspect]
     Active Substance: NIVOLUMAB
     Indication: Kaposi^s sarcoma
  2. CABOZANTINIB [Concomitant]
     Active Substance: CABOZANTINIB
     Indication: Kaposi^s sarcoma

REACTIONS (1)
  - Immune-mediated myocarditis [Unknown]
